FAERS Safety Report 4654163-3 (Version None)
Quarter: 2005Q2

REPORT INFORMATION
  Report Type: 
  Country: None (occurrence: None)
  Receive Date: 20050505
  Receipt Date: 20050427
  Transmission Date: 20051028
  Serious: Yes (Other)
  Sender: FDA-Public Use
  Company Number: AU-SANOFI-SYNTHELABO-A01200502860

PATIENT
  Age: 49 Year
  Sex: Female

DRUGS (2)
  1. STILNOX [Suspect]
     Indication: INSOMNIA
     Route: 048
     Dates: start: 20050426, end: 20050426
  2. HORMONE REPLACEMENT THERAPY [Concomitant]
     Indication: DRUG USE FOR UNKNOWN INDICATION
     Dosage: UNK
     Route: 065

REACTIONS (4)
  - CHEST PAIN [None]
  - DYSPNOEA [None]
  - SIMILAR REACTION ON PREVIOUS EXPOSURE TO DRUG [None]
  - SWELLING FACE [None]
